FAERS Safety Report 10634568 (Version 5)
Quarter: 2016Q4

REPORT INFORMATION
  Report Type: Spontaneous
  Country: US (occurrence: US)
  Receive Date: 20141205
  Receipt Date: 20161216
  Transmission Date: 20170206
  Serious: Yes (Death, Other)
  Sender: FDA-Public Use
  Company Number: US-ASTELLAS-2014US014313

PATIENT
  Sex: Male

DRUGS (1)
  1. XTANDI [Suspect]
     Active Substance: ENZALUTAMIDE
     Indication: PROSTATE CANCER
     Dosage: 160 MG (40 MG X 4 CAPSULES), ONCE DAILY
     Route: 048
     Dates: start: 20140710

REACTIONS (8)
  - Abdominal discomfort [Unknown]
  - Muscle spasms [Unknown]
  - Breast tenderness [Unknown]
  - Hyperhidrosis [Unknown]
  - Dry skin [Unknown]
  - Gynaecomastia [Unknown]
  - Hallucination [Unknown]
  - Death [Fatal]
